FAERS Safety Report 13503314 (Version 1)
Quarter: 2017Q2

REPORT INFORMATION
  Report Type: Spontaneous
  Country: US (occurrence: US)
  Receive Date: 20170502
  Receipt Date: 20170502
  Transmission Date: 20170830
  Serious: Yes (Other)
  Sender: FDA-Public Use
  Company Number: US-STANDARD HOMEOPATHIC COMPANY-2020097

PATIENT
  Age: 7 Month
  Weight: 13 kg

DRUGS (2)
  1. BABY TEETHING (HYLAND HOMEOPATHIC) [Suspect]
     Active Substance: HOMEOPATHICS
     Indication: TEETHING
     Route: 048
     Dates: start: 2016, end: 2017
  2. BABY TEETHING (HYLAND HOMEOPATHIC) [Suspect]
     Active Substance: HOMEOPATHICS
     Indication: BODY TEMPERATURE INCREASED
     Route: 048
     Dates: start: 2016, end: 2017

REACTIONS (7)
  - Seizure [None]
  - Irritability [None]
  - Eye movement disorder [None]
  - Abnormal behaviour [None]
  - Anger [None]
  - Constipation [None]
  - Dropped head syndrome [None]

NARRATIVE: CASE EVENT DATE: 2016
